FAERS Safety Report 5011441-6 (Version None)
Quarter: 2006Q2

REPORT INFORMATION
  Report Type: 
  Country: None (occurrence: None)
  Receive Date: 20060524
  Receipt Date: 20060511
  Transmission Date: 20061013
  Serious: Yes (Hospitalization)
  Sender: FDA-Public Use
  Company Number: 02100-JPN-06-0166

PATIENT
  Age: 71 Year
  Sex: Male

DRUGS (10)
  1. CILOSTAZOL [Suspect]
     Indication: CEREBRAL INFARCTION
     Dosage: 200 MG ORAL
     Route: 048
     Dates: start: 20031201, end: 20051026
  2. LOSARTAN POTASSIUM [Concomitant]
  3. AMLODIPINE BESYLATE [Concomitant]
  4. TRICHLORMETHIAZIDE [Concomitant]
  5. TICLOPIDINE HYDROCHLORIDE [Concomitant]
  6. PRAVASTATIN SODIUM [Concomitant]
  7. DILAZEP HYDROCHLORIDE [Concomitant]
  8. ALPRAZOLAM [Concomitant]
  9. ISOPROPYL UNOPROSTONE [Concomitant]
  10. PIRENOXINE [Concomitant]

REACTIONS (4)
  - CONDITION AGGRAVATED [None]
  - DIARRHOEA [None]
  - LYMPHOCYTE STIMULATION TEST POSITIVE [None]
  - PNEUMONITIS [None]
